FAERS Safety Report 23108156 (Version 3)
Quarter: 2023Q4

REPORT INFORMATION
  Report Type: Spontaneous
  Country: FI (occurrence: FI)
  Receive Date: 20231026
  Receipt Date: 20231110
  Transmission Date: 20240109
  Serious: Yes (Hospitalization, Other)
  Sender: FDA-Public Use
  Company Number: FI-MYLANLABS-2023M1105488

PATIENT

DRUGS (13)
  1. PREGABALIN [Suspect]
     Active Substance: PREGABALIN
     Indication: Pain
     Dosage: 300 MG, QD (USED FOR SEVERAL)
     Route: 065
  2. NORTRIPTYLINE [Concomitant]
     Active Substance: NORTRIPTYLINE
     Dosage: 20 MILLIGRAM, QD
     Route: 065
  3. PANTOPRAZOLE [Concomitant]
     Active Substance: PANTOPRAZOLE
     Dosage: UNK
     Route: 065
  4. METHYLPREDNISOLONE [Concomitant]
     Active Substance: METHYLPREDNISOLONE
     Dosage: UNK
     Route: 065
  5. SERTRALINE [Concomitant]
     Active Substance: SERTRALINE HYDROCHLORIDE
     Indication: Panic disorder
     Dosage: 150 MILLIGRAM, QD
     Route: 065
  6. SERTRALINE [Concomitant]
     Active Substance: SERTRALINE HYDROCHLORIDE
     Indication: Anxiety
  7. SERTRALINE [Concomitant]
     Active Substance: SERTRALINE HYDROCHLORIDE
     Indication: Depressive symptom
  8. BUPROPION [Concomitant]
     Active Substance: BUPROPION
     Indication: Panic disorder
     Dosage: 150 MILLIGRAM, QD
     Route: 065
  9. BUPROPION [Concomitant]
     Active Substance: BUPROPION
     Indication: Anxiety
  10. BUPROPION [Concomitant]
     Active Substance: BUPROPION
     Indication: Depressive symptom
  11. TACROLIMUS [Concomitant]
     Active Substance: TACROLIMUS
     Indication: Renal transplant
     Dosage: UNK
     Route: 065
  12. ENALAPRIL [Concomitant]
     Active Substance: ENALAPRIL
     Dosage: UNK
     Route: 065
  13. HYDROXYZINE [Concomitant]
     Active Substance: HYDROXYZINE HYDROCHLORIDE
     Dosage: UNK
     Route: 065

REACTIONS (15)
  - Withdrawal syndrome [Recovering/Resolving]
  - Anxiety [Recovered/Resolved]
  - Hyperventilation [Recovering/Resolving]
  - Affect lability [Recovering/Resolving]
  - Drug dependence [Unknown]
  - Treatment noncompliance [Unknown]
  - Panic disorder [Recovering/Resolving]
  - Vomiting [Unknown]
  - Abdominal pain [Unknown]
  - Blood bilirubin increased [Unknown]
  - Dyspnoea [Unknown]
  - Nausea [Unknown]
  - Depressed mood [Unknown]
  - Product dose omission issue [Unknown]
  - Off label use [Unknown]
